FAERS Safety Report 6629593-0 (Version None)
Quarter: 2010Q1

REPORT INFORMATION
  Report Type: 
  Country: None (occurrence: None)
  Receive Date: 20100311
  Receipt Date: 20100301
  Transmission Date: 20100710
  Serious: Yes (Other)
  Sender: FDA-Public Use
  Company Number: US-WYE-H13829810

PATIENT
  Sex: Male
  Weight: 104.42 kg

DRUGS (6)
  1. EFFEXOR XR [Suspect]
     Indication: DEPRESSION
     Dosage: UNKNOWN
     Route: 048
     Dates: start: 20020101
  2. EFFEXOR XR [Suspect]
     Dosage: ^MOST RECENT HIGH DOSE WAS 225 MG TWICE DAILY^
     Route: 048
     Dates: end: 20100101
  3. EFFEXOR XR [Suspect]
     Dosage: ^BEGAN TO TAPER^
     Route: 048
     Dates: start: 20100101
  4. OLMESARTAN [Concomitant]
     Dosage: UNKNOWN
  5. ADVAIR DISKUS 100/50 [Concomitant]
     Dosage: UNKNOWN
  6. AMLODIPINE BESYLATE [Concomitant]
     Dosage: UNKNOWN

REACTIONS (7)
  - BURNING SENSATION [None]
  - CONDITION AGGRAVATED [None]
  - DRUG EFFECT DECREASED [None]
  - DRUG WITHDRAWAL SYNDROME [None]
  - HYPERTENSION [None]
  - MYALGIA [None]
  - PAIN [None]
